FAERS Safety Report 10025623 (Version 1)
Quarter: 2014Q1

REPORT INFORMATION
  Report Type: Spontaneous
  Country: US (occurrence: None)
  Receive Date: 20140318
  Receipt Date: 20140318
  Transmission Date: 20141002
  Serious: Yes (Other)
  Sender: FDA-Public Use
  Company Number: US-014935

PATIENT
  Sex: Female

DRUGS (1)
  1. PICO-SALAX (NOT SPECIFIED) [Suspect]
     Indication: PRODUCT USED FOR UNKNOWN INDICATION
     Dosage: UNKNOWN IF ONE OR TWO PACKETS WAS TAKEN
     Route: 048
     Dates: start: 2013, end: 2013

REACTIONS (2)
  - Atrial fibrillation [None]
  - Hypocalcaemia [None]
